FAERS Safety Report 21879744 (Version 1)
Quarter: 2023Q1

REPORT INFORMATION
  Report Type: Spontaneous
  Country: US (occurrence: US)
  Receive Date: 20230118
  Receipt Date: 20230118
  Transmission Date: 20230418
  Serious: No
  Sender: FDA-Public Use
  Company Number: US-PERRIGO-22US015138

PATIENT
  Age: 4 Year
  Sex: Male
  Weight: 19.955 kg

DRUGS (3)
  1. IBUPROFEN [Suspect]
     Active Substance: IBUPROFEN
     Indication: Accidental exposure to product
     Dosage: 100 MG, PRN
     Route: 048
     Dates: start: 202210, end: 202210
  2. IBUPROFEN [Suspect]
     Active Substance: IBUPROFEN
     Indication: Pyrexia
     Dosage: APPROXIMATELY 1080 MG, SINGLE
     Route: 048
     Dates: start: 20221116, end: 20221116
  3. IBUPROFEN [Suspect]
     Active Substance: IBUPROFEN
     Indication: Pain

REACTIONS (2)
  - Accidental exposure to product by child [Unknown]
  - Underdose [Unknown]

NARRATIVE: CASE EVENT DATE: 20221001
